FAERS Safety Report 6904774-7 (Version None)
Quarter: 2010Q3

REPORT INFORMATION
  Report Type: 
  Country: None (occurrence: None)
  Receive Date: 20100804
  Receipt Date: 20090706
  Transmission Date: 20110219
  Serious: No
  Sender: FDA-Public Use
  Company Number: US-PFIZER INC-2009237312

PATIENT
  Sex: Male
  Weight: 107.3 kg

DRUGS (2)
  1. LYRICA [Suspect]
     Indication: BACK PAIN
     Dosage: 150 MG, 2X/DAY
     Route: 048
     Dates: start: 20080301
  2. CYCLOBENZAPRINE HCL [Suspect]
     Indication: BACK PAIN
     Dosage: 15 MG, QHS
     Route: 048
     Dates: start: 20090506

REACTIONS (2)
  - FEELING ABNORMAL [None]
  - HYPERSOMNIA [None]
